FAERS Safety Report 8972465 (Version 1)
Quarter: 2012Q4

REPORT INFORMATION
  Report Type: 
  Country: US (occurrence: US)
  Receive Date: 20121218
  Receipt Date: 20121218
  Transmission Date: 20130627
  Serious: Yes (Hospitalization)
  Sender: FDA-Public Use
  Company Number: US-WATSON-2012-21759

PATIENT
  Sex: Male

DRUGS (3)
  1. FIORINAL [Suspect]
     Indication: MIGRAINE
     Dosage: UNK, qid
     Route: 048
     Dates: start: 2012, end: 2012
  2. FIORICET [Concomitant]
     Indication: MIGRAINE
     Dosage: UNK
     Route: 048
     Dates: start: 2012
  3. COUMADIN                           /00014802/ [Concomitant]
     Indication: PULMONARY EMBOLISM
     Dosage: UNK
     Route: 048
     Dates: start: 2012

REACTIONS (2)
  - Pulmonary embolism [Recovered/Resolved]
  - Pulmonary haemorrhage [Recovered/Resolved]
